FAERS Safety Report 8285083-3 (Version None)
Quarter: 2012Q2

REPORT INFORMATION
  Report Type: 
  Country: None (occurrence: None)
  Receive Date: 20120413
  Receipt Date: 20120301
  Transmission Date: 20120825
  Serious: No
  Sender: FDA-Public Use
  Company Number: US-ASTRAZENECA-2011SE38245

PATIENT
  Age: 52 Year
  Sex: Female
  Weight: 61.2 kg

DRUGS (3)
  1. NEXIUM [Suspect]
     Indication: GASTROOESOPHAGEAL REFLUX DISEASE
     Route: 048
  2. CYMBALTA [Concomitant]
     Indication: ANXIETY
  3. CRESTOR [Suspect]
     Route: 048

REACTIONS (6)
  - COUGH [None]
  - ADVERSE EVENT [None]
  - UPPER RESPIRATORY TRACT INFECTION [None]
  - MALAISE [None]
  - NASOPHARYNGITIS [None]
  - SINUSITIS [None]
